FAERS Safety Report 15349695 (Version 4)
Quarter: 2019Q4

REPORT INFORMATION
  Report Type: Spontaneous
  Country: SE (occurrence: SE)
  Receive Date: 20180904
  Receipt Date: 20191015
  Transmission Date: 20200122
  Serious: Yes (Hospitalization, Disabling, Other)
  Sender: FDA-Public Use
  Company Number: SE-TAKEDA-2018TUS026291

PATIENT
  Age: 15 Year
  Sex: Male

DRUGS (3)
  1. HUMIRA [Concomitant]
     Active Substance: ADALIMUMAB
     Indication: COLITIS ULCERATIVE
     Dosage: 40 MILLIGRAM, 1/WEEK
     Dates: start: 20150714
  2. ENTYVIO [Suspect]
     Active Substance: VEDOLIZUMAB
     Indication: COLITIS ULCERATIVE
     Dosage: 300 MILLIGRAM
     Route: 042
     Dates: start: 20180320, end: 20180815
  3. AZATHIOPRINE. [Concomitant]
     Active Substance: AZATHIOPRINE
     Indication: COLITIS ULCERATIVE
     Dosage: 125 MILLIGRAM, QD
     Dates: start: 20170622, end: 20180615

REACTIONS (9)
  - JC polyomavirus test positive [Not Recovered/Not Resolved]
  - Tubulointerstitial nephritis [Recovering/Resolving]
  - Blood creatinine increased [Not Recovered/Not Resolved]
  - C-reactive protein increased [Recovering/Resolving]
  - Weight decreased [Recovering/Resolving]
  - Off label use [Unknown]
  - Drug level decreased [Unknown]
  - Fatigue [Unknown]
  - Renal disorder [Not Recovered/Not Resolved]

NARRATIVE: CASE EVENT DATE: 2018
